FAERS Safety Report 4434761-2 (Version None)
Quarter: 2004Q3

REPORT INFORMATION
  Report Type: 
  Country: None (occurrence: None)
  Receive Date: 20040726
  Receipt Date: 20040503
  Transmission Date: 20050211
  Serious: No
  Sender: FDA-Public Use
  Company Number: USA030125754

PATIENT
  Age: 88 Year
  Sex: Female
  Weight: 43 kg

DRUGS (5)
  1. FORTEO [Suspect]
     Indication: OSTEOPOROSIS
     Dosage: 20 UG DAY
     Dates: start: 20040201
  2. PREDNISONE [Concomitant]
  3. ALDACTONE [Concomitant]
  4. ZOLOFT [Concomitant]
  5. CALCIUM [Concomitant]

REACTIONS (4)
  - ACCIDENTAL NEEDLE STICK [None]
  - HYPOAESTHESIA [None]
  - INJECTION SITE HAEMORRHAGE [None]
  - PAIN IN EXTREMITY [None]
